FAERS Safety Report 4903613-3 (Version None)
Quarter: 2006Q1

REPORT INFORMATION
  Report Type: 
  Country: None (occurrence: None)
  Receive Date: 20060202
  Receipt Date: 20060123
  Transmission Date: 20060701
  Serious: Yes (Disabling, Other)
  Sender: FDA-Public Use
  Company Number: 2006012609

PATIENT
  Age: 64 Year
  Sex: 0
  Weight: 73.3 kg

DRUGS (11)
  1. LYRICA [Suspect]
     Indication: NEURALGIA
     Dosage: 300 MG (150 MG, 2 IN 1 D), ORAL
     Route: 048
     Dates: start: 20051020
  2. PRAVASTATIN [Concomitant]
  3. CALCICHEW-D3 (CALCIUM CARBONATE, COLECALCIFEROL) [Concomitant]
  4. KETOCONAZOLE [Concomitant]
  5. RISEDRONIC ACID (RISEDRONIC ACID) [Concomitant]
  6. CO-DYDRAMOL (DIHYDROCODEINE BITARTRATE, PARACETAMOL) [Concomitant]
  7. DIHYDROCODEINE (DIHYDROCODEINE) [Concomitant]
  8. SALBUTAMOL (SALBUTAMOL) [Concomitant]
  9. DICLOFENAC SODIUM [Concomitant]
  10. MISOPROSTOL [Concomitant]
  11. LANSOPRAZOLE [Concomitant]

REACTIONS (16)
  - ABNORMAL DREAMS [None]
  - CHEST DISCOMFORT [None]
  - DIZZINESS [None]
  - DRUG WITHDRAWAL SYNDROME [None]
  - DYSKINESIA [None]
  - FATIGUE [None]
  - FEELING ABNORMAL [None]
  - FEELING COLD [None]
  - INSOMNIA [None]
  - MENTAL IMPAIRMENT [None]
  - MUSCLE SPASMS [None]
  - MUSCLE TWITCHING [None]
  - NAUSEA [None]
  - PAROSMIA [None]
  - SOMNOLENCE [None]
  - SPEECH DISORDER [None]
